FAERS Safety Report 4416998-1 (Version None)
Quarter: 2004Q3

REPORT INFORMATION
  Report Type: 
  Country: None (occurrence: None)
  Receive Date: 20040806
  Receipt Date: 20040614
  Transmission Date: 20050211
  Serious: Yes (Hospitalization)
  Sender: FDA-Public Use
  Company Number: GB-AMGEN-UK079838

PATIENT
  Weight: 110 kg

DRUGS (6)
  1. FILGRASTIM [Suspect]
     Indication: CHEMOTHERAPY
     Route: 058
     Dates: start: 20040419
  2. ATENOLOL [Concomitant]
     Route: 048
     Dates: start: 20031101
  3. THIAMINE [Concomitant]
     Route: 048
     Dates: start: 20031101
  4. VITAMIN C [Concomitant]
     Route: 048
     Dates: start: 20031101
  5. CARBOPLATIN [Concomitant]
  6. PACLITAXEL [Concomitant]

REACTIONS (3)
  - EPISTAXIS [None]
  - NEUTROPENIA [None]
  - THROMBOCYTOPENIA [None]
